FAERS Safety Report 17431179 (Version 1)
Quarter: 2020Q1

REPORT INFORMATION
  Report Type: Spontaneous
  Country: US (occurrence: US)
  Receive Date: 20200217
  Receipt Date: 20200217
  Transmission Date: 20200409
  Serious: Yes (Disabling)
  Sender: FDA-Public Use
  Company Number: None

PATIENT
  Age: 52 Year
  Sex: Female
  Weight: 58.5 kg

DRUGS (11)
  1. SEROQUEL [Concomitant]
     Active Substance: QUETIAPINE FUMARATE
  2. VITAMIN D [Concomitant]
     Active Substance: VITAMIN D NOS
  3. MAGNESIUM THREONATE [Concomitant]
  4. REMERON [Concomitant]
     Active Substance: MIRTAZAPINE
  5. MULTIVITAMIN [Concomitant]
     Active Substance: VITAMINS
  6. CARDIZEM ER [Concomitant]
     Active Substance: DILTIAZEM HYDROCHLORIDE
  7. SYNTHROID [Concomitant]
     Active Substance: LEVOTHYROXINE SODIUM
  8. ZINC. [Concomitant]
     Active Substance: ZINC
  9. CASTOR OIL CAPSULES [Concomitant]
  10. INGREZZA [Concomitant]
     Active Substance: VALBENAZINE
  11. SEROQUEL [Suspect]
     Active Substance: QUETIAPINE FUMARATE
     Indication: INSOMNIA
     Dosage: ?          QUANTITY:1 TABLET(S);?
     Route: 048

REACTIONS (15)
  - Optic nerve disorder [None]
  - Glaucoma [None]
  - Cataract [None]
  - Anxiety [None]
  - Tardive dyskinesia [None]
  - Amnesia [None]
  - Loss of personal independence in daily activities [None]
  - Confusional state [None]
  - Insomnia [None]
  - Back pain [None]
  - Blood pressure increased [None]
  - Drug withdrawal syndrome [None]
  - Hypothyroidism [None]
  - Abdominal pain [None]
  - Chest pain [None]

NARRATIVE: CASE EVENT DATE: 20180614
